FAERS Safety Report 5484461-5 (Version None)
Quarter: 2007Q4

REPORT INFORMATION
  Report Type: 
  Country: None (occurrence: None)
  Receive Date: 20071009
  Receipt Date: 20070927
  Transmission Date: 20080405
  Serious: Yes (Hospitalization)
  Sender: FDA-Public Use
  Company Number: CHNY2007PT03312

PATIENT
  Age: 57 Year
  Sex: Female
  Weight: 59 kg

DRUGS (3)
  1. TAVIST [Suspect]
     Indication: DRUG TOXICITY PROPHYLAXIS
     Dosage: 1 DF, QD, INJECTION NOS
     Dates: start: 20070827, end: 20070827
  2. DEXAMETHASONE SODIUM PHOSPHATE [Concomitant]
  3. TROPISETRON HYDROCHLORIDE [Concomitant]

REACTIONS (1)
  - ACUTE PULMONARY OEDEMA [None]
